FAERS Safety Report 18263240 (Version 6)
Quarter: 2021Q4

REPORT INFORMATION
  Report Type: Other
  Country: JP (occurrence: JP)
  Receive Date: 20200914
  Receipt Date: 20211015
  Transmission Date: 20220303
  Serious: Yes (Death, Hospitalization, Other)
  Sender: FDA-Public Use
  Company Number: JP-CHUGAI-A2020041183ROCHE

PATIENT
  Age: 67 Year
  Sex: Male
  Weight: 55 kg

DRUGS (11)
  1. ATEZOLIZUMAB [Suspect]
     Active Substance: ATEZOLIZUMAB
     Indication: Non-small cell lung cancer
     Dosage: ON 06/JAN/2021, MOST RECENT DOSE
     Route: 041
     Dates: start: 20191101
  2. BEVACIZUMAB [Suspect]
     Active Substance: BEVACIZUMAB
     Indication: Non-small cell lung cancer
     Dosage: ON 06/JAN/2021, MOST RECENT DOSE
     Route: 041
     Dates: start: 20191101
  3. EDOXABAN TOSYLATE [Suspect]
     Active Substance: EDOXABAN TOSYLATE
     Indication: Thrombosis prophylaxis
     Dosage: AFTER THE BREAKFAST?ON 04/FEB/2021, MOST RECENT DOSE
     Route: 048
     Dates: start: 20180412
  4. CARBOPLATIN [Concomitant]
     Active Substance: CARBOPLATIN
     Indication: Non-small cell lung cancer
     Dosage: DOSAGE IS UNCERTAIN.?AUC=6
     Route: 041
     Dates: start: 20191101, end: 20200108
  5. PACLITAXEL [Concomitant]
     Active Substance: PACLITAXEL
     Indication: Non-small cell lung cancer
     Dosage: DOSAGE IS UNCERTAIN.
     Route: 041
     Dates: start: 20191101, end: 20200108
  6. TAPENTADOL HYDROCHLORIDE [Concomitant]
     Active Substance: TAPENTADOL HYDROCHLORIDE
     Indication: Cancer pain
     Dosage: AFTER THE BREAKFAST
     Route: 048
     Dates: start: 20180607
  7. TAPENTADOL HYDROCHLORIDE [Concomitant]
     Active Substance: TAPENTADOL HYDROCHLORIDE
     Dosage: AFTER THE SUPPER
     Route: 048
     Dates: start: 20180607
  8. OXYCODONE HYDROCHLORIDE [Concomitant]
     Active Substance: OXYCODONE HYDROCHLORIDE
     Indication: Cancer pain
     Dosage: AS REQUIRED?SINGLE USE AT PAIN
     Route: 048
     Dates: start: 20210106
  9. CELECOXIB [Concomitant]
     Active Substance: CELECOXIB
     Indication: Cancer pain
     Dosage: AFTER THE MEAL IN THE MORNING AND EVENING
     Route: 048
     Dates: start: 20161018
  10. CALONAL [Concomitant]
     Active Substance: ACETAMINOPHEN
     Indication: Cancer pain
     Route: 048
     Dates: start: 20210102
  11. VONOPRAZAN FUMARATE [Concomitant]
     Active Substance: VONOPRAZAN FUMARATE
     Indication: Prophylaxis against gastrointestinal ulcer
     Dosage: AFTER THE BREAKFAST
     Route: 048
     Dates: start: 20170119

REACTIONS (11)
  - Osteonecrosis of jaw [Unknown]
  - Adrenal disorder [Recovering/Resolving]
  - Upper gastrointestinal haemorrhage [Not Recovered/Not Resolved]
  - Lung adenocarcinoma [Fatal]
  - General physical health deterioration [Not Recovered/Not Resolved]
  - Hypercalcaemia [Unknown]
  - Thrombophlebitis migrans [Unknown]
  - Oesophageal candidiasis [Unknown]
  - Optic nerve injury [Unknown]
  - Hyperkalaemia [Unknown]
  - Cerebral infarction [Unknown]

NARRATIVE: CASE EVENT DATE: 20200701
